FAERS Safety Report 8538169-X (Version None)
Quarter: 2012Q3

REPORT INFORMATION
  Report Type: 
  Country: None (occurrence: None)
  Receive Date: 20120726
  Receipt Date: 20120718
  Transmission Date: 20120928
  Serious: Yes (Hospitalization)
  Sender: FDA-Public Use
  Company Number: NL-009507513-1207NLD006964

PATIENT

DRUGS (1)
  1. SYNAPAUSE-E3 [Suspect]
     Dosage: 0.5 MG, BIW
     Route: 067
     Dates: start: 20120710, end: 20120711

REACTIONS (13)
  - VAGINAL DISCHARGE [None]
  - BURNING SENSATION [None]
  - ABDOMINAL DISCOMFORT [None]
  - VOMITING [None]
  - CHILLS [None]
  - COUGH [None]
  - VULVOVAGINAL BURNING SENSATION [None]
  - MALAISE [None]
  - PAIN [None]
  - ILEUS [None]
  - PYREXIA [None]
  - DYSPNOEA [None]
  - PALPITATIONS [None]
